FAERS Safety Report 23380845 (Version 1)
Quarter: 2024Q1

REPORT INFORMATION
  Report Type: Spontaneous
  Country: US (occurrence: US)
  Receive Date: 20240109
  Receipt Date: 20240109
  Transmission Date: 20240409
  Serious: Yes (Hospitalization, Other)
  Sender: FDA-Public Use
  Company Number: US-AUROBINDO-AUR-APL-2023-036795

PATIENT
  Age: 45 Year
  Sex: Female

DRUGS (1)
  1. CLOZAPINE [Suspect]
     Active Substance: CLOZAPINE
     Indication: Product used for unknown indication
     Dosage: UNK
     Route: 048
     Dates: end: 20230421

REACTIONS (7)
  - Overdose [Unknown]
  - Therapy interrupted [Unknown]
  - Depressed mood [Unknown]
  - Dysphoria [Unknown]
  - Catatonia [Unknown]
  - Feeling of despair [Unknown]
  - Malaise [Unknown]
